FAERS Safety Report 7593757-2 (Version None)
Quarter: 2011Q3

REPORT INFORMATION
  Report Type: 
  Country: None (occurrence: None)
  Receive Date: 20110706
  Receipt Date: 20110626
  Transmission Date: 20111222
  Serious: Yes (Hospitalization)
  Sender: FDA-Public Use
  Company Number: PHHY2011MX57513

PATIENT
  Sex: Female

DRUGS (1)
  1. DIOVAN HCT [Suspect]
     Indication: HYPERTENSION
     Dosage: 160 MG VALSARTANA AND 25 MG HYDROCHLOROTHIAZIDE, DAILY
     Dates: start: 20110428

REACTIONS (5)
  - DEVICE MATERIAL ISSUE [None]
  - PROCEDURAL COMPLICATION [None]
  - THROMBOSIS [None]
  - HYPOTENSION [None]
  - HAEMORRHAGE [None]
